FAERS Safety Report 11862348 (Version 3)
Quarter: 2016Q1

REPORT INFORMATION
  Report Type: Spontaneous
  Country: ES (occurrence: ES)
  Receive Date: 20151223
  Receipt Date: 20160121
  Transmission Date: 20160526
  Serious: Yes (Hospitalization)
  Sender: FDA-Public Use
  Company Number: ES-ROCHE-1679360

PATIENT
  Age: 45 Year

DRUGS (17)
  1. ESBRIET [Suspect]
     Active Substance: PIRFENIDONE
     Indication: INTERSTITIAL LUNG DISEASE
     Dosage: AT BREAKFAST, LUNCH AND DINNER FOR 7 DAYS
     Route: 048
  2. ESBRIET [Suspect]
     Active Substance: PIRFENIDONE
     Dosage: AT BREAKFAST, LUNCH AND DINNER FOR 7 DAYS
     Route: 048
  3. CAPTOPRIL. [Concomitant]
     Active Substance: CAPTOPRIL
     Dosage: ONE AT MORNING AND ONE AT NIGHT
     Route: 065
  4. NOVONORM [Concomitant]
     Active Substance: REPAGLINIDE
     Dosage: ONE AT MORNING, AFTERNOON, NIGHT
     Route: 065
  5. DACORTIN [Concomitant]
     Active Substance: PREDNISONE
  6. ESBRIET [Suspect]
     Active Substance: PIRFENIDONE
     Indication: IDIOPATHIC PULMONARY FIBROSIS
     Dosage: AT BREAKFAST, LUNCH AND DINNER FOR 7 DAYS
     Route: 048
     Dates: start: 201207
  7. FLUTOX (SPAIN) [Concomitant]
     Dosage: ONE IN MORNING, AFTERNOON AND 2 AT NIGHT
     Route: 065
  8. RANITIDINE [Concomitant]
     Active Substance: RANITIDINE\RANITIDINE HYDROCHLORIDE
     Route: 048
  9. SECALIP [Concomitant]
     Active Substance: FENOFIBRATE
  10. SPIRIVA [Concomitant]
     Active Substance: TIOTROPIUM BROMIDE MONOHYDRATE
  11. SINTROM [Concomitant]
     Active Substance: ACENOCOUMAROL
  12. METFORMIN [Concomitant]
     Active Substance: METFORMIN HYDROCHLORIDE
     Dosage: ONE AT MORNING, AFTERNOON, NIGHT
     Route: 065
  13. ZARATOR [Concomitant]
     Active Substance: ATORVASTATIN CALCIUM
     Dosage: ONE AT NIGHT
     Route: 065
  14. GANCICLOVIR. [Suspect]
     Active Substance: GANCICLOVIR
     Indication: CYTOMEGALOVIRUS INFECTION
     Route: 042
     Dates: start: 20140731, end: 20140821
  15. FLUMIL (SPAIN) [Concomitant]
     Dosage: AT MORNING, AFTERNOON AND AT NIGHT
     Route: 065
  16. N-ACETYLCYSTEIN [Concomitant]
     Dosage: 1 TABLET AT BREAKFAST, LUNCH AND DINNER
     Route: 048
  17. AMERIDE (SPAIN) [Concomitant]

REACTIONS (11)
  - Respiratory tract infection [Recovering/Resolving]
  - Cough [Recovering/Resolving]
  - Respiratory failure [Recovering/Resolving]
  - Hypotension [Recovering/Resolving]
  - Acute respiratory failure [Recovering/Resolving]
  - International normalised ratio abnormal [Recovering/Resolving]
  - Haemoptysis [Recovering/Resolving]
  - Oxygen saturation decreased [Recovering/Resolving]
  - Pulmonary embolism [Recovering/Resolving]
  - Pulmonary oedema [Recovering/Resolving]
  - Lung infection [Recovering/Resolving]

NARRATIVE: CASE EVENT DATE: 20140502
